FAERS Safety Report 19624769 (Version 3)
Quarter: 2022Q1

REPORT INFORMATION
  Report Type: Spontaneous
  Country: US (occurrence: None)
  Receive Date: 20210729
  Receipt Date: 20220128
  Transmission Date: 20220423
  Serious: No
  Sender: FDA-Public Use
  Company Number: US-ULTRAGENYX PHARMACEUTICAL INC.-US-UGNX-21-00114

PATIENT
  Sex: Female

DRUGS (5)
  1. DOJOLVI [Suspect]
     Active Substance: TRIHEPTANOIN
     Indication: Carnitine palmitoyltransferase deficiency
     Dates: start: 20210501
  2. DOJOLVI [Suspect]
     Active Substance: TRIHEPTANOIN
     Route: 048
     Dates: start: 20210324
  3. DOJOLVI [Suspect]
     Active Substance: TRIHEPTANOIN
     Route: 048
  4. DOJOLVI [Suspect]
     Active Substance: TRIHEPTANOIN
     Route: 048
     Dates: start: 20210430
  5. DOJOLVI [Suspect]
     Active Substance: TRIHEPTANOIN
     Route: 048
     Dates: end: 202111

REACTIONS (7)
  - Nausea [Unknown]
  - Abdominal distension [Unknown]
  - Abdominal pain upper [Unknown]
  - Diarrhoea [Unknown]
  - Vomiting [Unknown]
  - Abdominal discomfort [Unknown]
  - Drug effect less than expected [Unknown]
